FAERS Safety Report 5535438-2 (Version None)
Quarter: 2007Q4

REPORT INFORMATION
  Report Type: 
  Country: None (occurrence: None)
  Receive Date: 20071206
  Receipt Date: 20071127
  Transmission Date: 20080405
  Serious: Yes (Other)
  Sender: FDA-Public Use
  Company Number: JP-PFIZER INC-2007100344

PATIENT
  Age: 22 Year
  Sex: Female

DRUGS (2)
  1. HALCION [Suspect]
     Route: 048
  2. ANTIPSYCHOTICS [Suspect]

REACTIONS (5)
  - ALTERED STATE OF CONSCIOUSNESS [None]
  - BLOOD PRESSURE DECREASED [None]
  - INTENTIONAL OVERDOSE [None]
  - PYREXIA [None]
  - SUICIDE ATTEMPT [None]
